FAERS Safety Report 19313017 (Version 1)
Quarter: 2021Q2

REPORT INFORMATION
  Report Type: Spontaneous
  Country: US (occurrence: US)
  Receive Date: 20210526
  Receipt Date: 20210526
  Transmission Date: 20210717
  Serious: Yes (Hospitalization)
  Sender: FDA-Public Use
  Company Number: None

PATIENT
  Sex: Male

DRUGS (1)
  1. ANTICAVITY (SODIUM FLUORIDE) [Suspect]
     Active Substance: SODIUM FLUORIDE
     Dosage: ?          OTHER DOSE:UNKNOWN;OTHER FREQUENCY:UNKNOWN;?
     Route: 002

REACTIONS (2)
  - Lip swelling [None]
  - Oral pain [None]
